FAERS Safety Report 6993499-8 (Version None)
Quarter: 2010Q3

REPORT INFORMATION
  Report Type: 
  Country: None (occurrence: None)
  Receive Date: 20100917
  Receipt Date: 20100701
  Transmission Date: 20110219
  Serious: No
  Sender: FDA-Public Use
  Company Number: US-ASTRAZENECA-2010SE30858

PATIENT
  Age: 49 Year
  Sex: Male
  Weight: 88.5 kg

DRUGS (4)
  1. SEROQUEL XR [Suspect]
     Indication: BIPOLAR DISORDER
     Route: 048
  2. SEROQUEL XR [Suspect]
     Indication: DEPRESSION
     Route: 048
  3. SEROQUEL XR [Suspect]
     Route: 048
  4. SEROQUEL XR [Suspect]
     Route: 048

REACTIONS (4)
  - CONFUSIONAL STATE [None]
  - MOOD ALTERED [None]
  - NIGHTMARE [None]
  - SLEEP TALKING [None]
